FAERS Safety Report 9063701 (Version 1)
Quarter: 2013Q1

REPORT INFORMATION
  Report Type: Report from Study
  Country: US (occurrence: US)
  Receive Date: 20130131
  Receipt Date: 20130131
  Transmission Date: 20140127
  Serious: No
  Sender: FDA-Public Use
  Company Number: US-ABBOTT-12P-163-1013348-00

PATIENT
  Age: 43 Year
  Sex: Female

DRUGS (17)
  1. HUMIRA [Suspect]
     Indication: RHEUMATOID ARTHRITIS
     Dosage: INITIAL DOSE
     Dates: start: 20121119
  2. VENLAFAXINE [Concomitant]
     Indication: ANXIETY
  3. MELOXICAM [Concomitant]
     Indication: RHEUMATOID ARTHRITIS
  4. AMITRIPTYLINE [Concomitant]
     Indication: INSOMNIA
  5. AMITRIPTYLINE [Concomitant]
     Indication: MIGRAINE
  6. METFORMIN [Concomitant]
     Indication: TYPE 2 DIABETES MELLITUS
  7. METHOTREXATE [Concomitant]
     Indication: PRODUCT USED FOR UNKNOWN INDICATION
     Dosage: 8 TABLETS EVERY WEEK
  8. FOLIC ACID [Concomitant]
     Indication: UNEVALUABLE EVENT
  9. OMEPRAZOLE [Concomitant]
     Indication: PHARYNGEAL ULCERATION
     Dosage: 1-2 TABLETS DAILY
  10. PREDNISONE [Concomitant]
     Indication: PRODUCT USED FOR UNKNOWN INDICATION
  11. TRAMADOL [Concomitant]
     Indication: PAIN
     Dosage: AS NEEDED
  12. ONDANSETRON [Concomitant]
     Indication: PAIN
     Dosage: AS NEEDED
  13. CYCLOBENZAPRINE [Concomitant]
     Indication: FIBROMYALGIA
  14. CYCLOBENZAPRINE [Concomitant]
     Indication: MIGRAINE
  15. DIPHENOXYLATE [Concomitant]
     Indication: IRRITABLE BOWEL SYNDROME
     Dosage: AS NEEDED
  16. DIPHENOXYLATE [Concomitant]
     Indication: COELIAC DISEASE
  17. MULTI-VITAMIN [Concomitant]
     Indication: PRODUCT USED FOR UNKNOWN INDICATION

REACTIONS (6)
  - Unevaluable event [Not Recovered/Not Resolved]
  - Rash erythematous [Not Recovered/Not Resolved]
  - Miliaria [Not Recovered/Not Resolved]
  - Erythema [Not Recovered/Not Resolved]
  - Chest discomfort [Not Recovered/Not Resolved]
  - Erythema [Not Recovered/Not Resolved]
